FAERS Safety Report 9282764 (Version 1)
Quarter: 2013Q2

REPORT INFORMATION
  Report Type: Spontaneous
  Country: US (occurrence: None)
  Receive Date: 20130509
  Receipt Date: 20130509
  Transmission Date: 20140414
  Serious: Yes (Life-Threatening)
  Sender: FDA-Public Use
  Company Number: None

PATIENT
  Age: 62 Year
  Sex: Female
  Weight: 94.35 kg

DRUGS (1)
  1. JANUMET [Suspect]
     Indication: BLOOD GLUCOSE
     Dosage: 50MG TWICE DAILY BY MOUTH
     Route: 048
     Dates: start: 20130403, end: 20130415

REACTIONS (3)
  - Pruritus [None]
  - Urticaria [None]
  - Dizziness [None]
